FAERS Safety Report 9701283 (Version 1)
Quarter: 2013Q4

REPORT INFORMATION
  Report Type: Spontaneous
  Country: US (occurrence: US)
  Receive Date: 20131121
  Receipt Date: 20131121
  Transmission Date: 20140711
  Serious: No
  Sender: FDA-Public Use
  Company Number: US-GILEAD-2008-0016376

PATIENT
  Sex: Female

DRUGS (7)
  1. LETAIRIS [Suspect]
     Indication: PULMONARY ARTERIAL HYPERTENSION
     Route: 048
  2. WARFARIN [Concomitant]
     Route: 065
  3. DIGOXIN [Concomitant]
     Route: 065
  4. FUROSEMIDE [Concomitant]
     Route: 065
  5. REVATIO [Concomitant]
     Route: 065
  6. GABAPENTIN [Concomitant]
     Route: 065
  7. REMODULIN [Concomitant]
     Route: 065

REACTIONS (2)
  - Nasal congestion [Recovered/Resolved with Sequelae]
  - Sinus congestion [Recovered/Resolved with Sequelae]
